FAERS Safety Report 7879327-7 (Version None)
Quarter: 2011Q4

REPORT INFORMATION
  Report Type: 
  Country: None (occurrence: None)
  Receive Date: 20111101
  Receipt Date: 20111019
  Transmission Date: 20120403
  Serious: Yes (Hospitalization)
  Sender: FDA-Public Use
  Company Number: CA-ELI_LILLY_AND_COMPANY-CA201110005420

PATIENT
  Age: 70 Year
  Sex: Female

DRUGS (15)
  1. LEFLUNOMIDE [Concomitant]
     Dosage: 10 MG, QOD
  2. HYDROMORPHONE HCL [Concomitant]
     Dosage: 2 MG, QID
  3. METHOTREXATE [Concomitant]
     Dosage: 7.5 MG, UNK
  4. FOLIC ACID [Concomitant]
     Dosage: 5 MG, WEEKLY (1/W)
  5. SENOKOT [Concomitant]
     Dosage: UNK, OTHER
  6. ZOPICLONE [Concomitant]
     Dosage: 7.5 MG, OTHER
  7. FORTEO [Suspect]
     Indication: OSTEOPOROSIS
     Dosage: 20 UG, QD
     Route: 058
     Dates: start: 20110816
  8. PREDNISONE [Concomitant]
     Dosage: 15 MG, BID
  9. PAROXETINE HCL [Concomitant]
     Dosage: 10 MG, QOD
  10. RABEPRAZOLE SODIUM [Concomitant]
     Dosage: 20 MG, QOD
  11. ALDACTAZIDE [Concomitant]
     Dosage: 50 MG, QOD
  12. PLAQUENIL [Concomitant]
     Dosage: 200 MG, BID
  13. NORTRIPTYLINE HCL [Concomitant]
     Dosage: 30 MG, OTHER
  14. HYDROMORPHONE HCL [Concomitant]
     Dosage: 24 MG, TID
  15. SOFLAX [Concomitant]
     Dosage: 100 MG, BID

REACTIONS (1)
  - THROMBOSIS [None]
